FAERS Safety Report 7742457-4 (Version None)
Quarter: 2011Q3

REPORT INFORMATION
  Report Type: 
  Country: None (occurrence: None)
  Receive Date: 20110912
  Receipt Date: 20110829
  Transmission Date: 20111222
  Serious: Yes (Other)
  Sender: FDA-Public Use
  Company Number: DE-MYLANLABS-2011S1018336

PATIENT
  Age: 49 Year
  Sex: Male

DRUGS (3)
  1. MYCOPHENOLATE MOFETIL [Concomitant]
     Indication: IMMUNOSUPPRESSION
     Route: 065
  2. CHAMOMILE /00512601/ [Interacting]
     Dosage: 2-3 L/DAY CHAMOMILE TEA
     Route: 048
  3. TACROLIMUS [Suspect]
     Indication: IMMUNOSUPPRESSION
     Route: 065

REACTIONS (3)
  - DRUG LEVEL ABOVE THERAPEUTIC [None]
  - RENAL IMPAIRMENT [None]
  - FOOD INTERACTION [None]
